FAERS Safety Report 19712992 (Version 1)
Quarter: 2021Q3

REPORT INFORMATION
  Report Type: Spontaneous
  Country: US (occurrence: US)
  Receive Date: 20210817
  Receipt Date: 20210817
  Transmission Date: 20211014
  Serious: Yes (Hospitalization)
  Sender: FDA-Public Use
  Company Number: None

PATIENT
  Age: 54 Year
  Sex: Male
  Weight: 83.9 kg

DRUGS (1)
  1. REGEN?COV [Suspect]
     Active Substance: CASIRIVIMAB\IMDEVIMAB
     Indication: COVID-19
     Dosage: ?          OTHER FREQUENCY:ONCE;?
     Route: 041
     Dates: start: 20210814, end: 20210814

REACTIONS (7)
  - Infusion related reaction [None]
  - Urticaria [None]
  - Unresponsive to stimuli [None]
  - Seizure like phenomena [None]
  - Feeling hot [None]
  - Vomiting [None]
  - Blood glucose increased [None]

NARRATIVE: CASE EVENT DATE: 20210814
